FAERS Safety Report 25388636 (Version 1)
Quarter: 2025Q2

REPORT INFORMATION
  Report Type: Spontaneous
  Country: CA (occurrence: CA)
  Receive Date: 20250603
  Receipt Date: 20250603
  Transmission Date: 20250717
  Serious: Yes (Hospitalization, Other)
  Sender: SUNOVION
  Company Number: CA-SMPA-2025SPA006765

PATIENT

DRUGS (1)
  1. MYFEMBREE [Suspect]
     Active Substance: ESTRADIOL HEMIHYDRATE\NORETHINDRONE ACETATE\RELUGOLIX
     Indication: Uterine leiomyoma
     Dosage: 40 MG, SINGLE
     Route: 065
     Dates: start: 20250327, end: 20250527

REACTIONS (2)
  - Abdominal pain [Unknown]
  - Hysterectomy [Unknown]
